FAERS Safety Report 11626758 (Version 1)
Quarter: 2015Q4

REPORT INFORMATION
  Report Type: Spontaneous
  Country: US (occurrence: US)
  Receive Date: 20151013
  Receipt Date: 20151013
  Transmission Date: 20160304
  Serious: Yes (Other)
  Sender: FDA-Public Use
  Company Number: US-SHIRE-US201512518

PATIENT
  Sex: Male
  Weight: 90.7 kg

DRUGS (4)
  1. ATENOLOL. [Concomitant]
     Active Substance: ATENOLOL
     Indication: BLOOD PRESSURE ABNORMAL
     Dosage: UNK, UNKNOWN
     Route: 048
  2. LIALDA [Suspect]
     Active Substance: MESALAMINE
     Indication: COLITIS ULCERATIVE
     Dosage: 4.8 G (FOUR 1.2G TABLETS), 1X/DAY:QD
     Route: 048
     Dates: start: 2015
  3. LOVASTATIN. [Concomitant]
     Active Substance: LOVASTATIN
     Indication: PRODUCT USED FOR UNKNOWN INDICATION
     Dosage: UNK, UNKNOWN
     Route: 048
  4. HCTZ [Concomitant]
     Active Substance: HYDROCHLOROTHIAZIDE
     Indication: BLOOD PRESSURE ABNORMAL
     Dosage: UNK, UNKNOWN
     Route: 048

REACTIONS (3)
  - Blood alkaline phosphatase increased [Not Recovered/Not Resolved]
  - Irritable bowel syndrome [Unknown]
  - Haematochezia [Recovered/Resolved]

NARRATIVE: CASE EVENT DATE: 2015
